FAERS Safety Report 20923351 (Version 1)
Quarter: 2022Q2

REPORT INFORMATION
  Report Type: Spontaneous
  Country: GB (occurrence: None)
  Receive Date: 20220607
  Receipt Date: 20220607
  Transmission Date: 20220721
  Serious: Yes (Hospitalization)
  Sender: FDA-Public Use
  Company Number: None

PATIENT
  Age: 61 Year
  Sex: Female

DRUGS (1)
  1. CAPECITABINE [Suspect]
     Active Substance: CAPECITABINE
     Indication: Gallbladder cancer
     Route: 048
     Dates: start: 20211018, end: 20211021

REACTIONS (2)
  - Acute myocardial infarction [Unknown]
  - Chemotherapy cardiotoxicity attenuation [Not Recovered/Not Resolved]
